FAERS Safety Report 16306564 (Version 3)
Quarter: 2021Q2

REPORT INFORMATION
  Report Type: Spontaneous
  Country: US (occurrence: US)
  Receive Date: 20190513
  Receipt Date: 20210429
  Transmission Date: 20210716
  Serious: Yes (Disabling, Other)
  Sender: FDA-Public Use
  Company Number: US-ASTRAZENECA-2019SE64155

PATIENT
  Age: 42 Year
  Sex: Male
  Weight: 99.8 kg

DRUGS (74)
  1. PRILOSEC [Suspect]
     Active Substance: OMEPRAZOLE MAGNESIUM
     Indication: DYSPEPSIA
     Route: 048
  2. PRILOSEC OTC [Suspect]
     Active Substance: OMEPRAZOLE MAGNESIUM
     Indication: DYSPEPSIA
     Dosage: 20.0MG UNKNOWN
     Route: 048
     Dates: start: 2007, end: 2015
  3. VERAPAMIL [Concomitant]
     Active Substance: VERAPAMIL HYDROCHLORIDE
  4. GEMFIBROZIL. [Concomitant]
     Active Substance: GEMFIBROZIL
  5. SILVER SULFA [Concomitant]
  6. AZELASTINE. [Concomitant]
     Active Substance: AZELASTINE HYDROCHLORIDE
  7. DIAZEPAM. [Concomitant]
     Active Substance: DIAZEPAM
  8. BENADRYL [Concomitant]
     Active Substance: DIPHENHYDRAMINE HYDROCHLORIDE
  9. PREVACID 24 HR [Suspect]
     Active Substance: LANSOPRAZOLE
     Indication: DYSPEPSIA
     Dosage: 15.0MG UNKNOWN
     Route: 065
     Dates: start: 2007, end: 2015
  10. LISINOPRIL. [Concomitant]
     Active Substance: LISINOPRIL
     Indication: BLOOD PRESSURE MEASUREMENT
     Dates: start: 200707
  11. HYDROZINE [Concomitant]
     Indication: ANXIETY
     Dates: start: 200707
  12. CLONAZEPAM. [Concomitant]
     Active Substance: CLONAZEPAM
     Indication: SLEEP DISORDER
  13. VITAMIN D [Concomitant]
     Active Substance: VITAMIN D NOS
     Indication: SUPPLEMENTATION THERAPY
  14. TYLENOL [Concomitant]
     Active Substance: ACETAMINOPHEN
     Indication: HEADACHE
  15. COZAAR [Concomitant]
     Active Substance: LOSARTAN POTASSIUM
  16. ONDANSETRON [Concomitant]
     Active Substance: ONDANSETRON
  17. PROCHLORPERAZINE. [Concomitant]
     Active Substance: PROCHLORPERAZINE
  18. CLINDAMYCIN. [Concomitant]
     Active Substance: CLINDAMYCIN
  19. HECTOROL [Concomitant]
     Active Substance: DOXERCALCIFEROL
  20. ALLOPURINOL. [Concomitant]
     Active Substance: ALLOPURINOL
  21. NEXIUM [Suspect]
     Active Substance: ESOMEPRAZOLE MAGNESIUM
     Indication: DYSPEPSIA
     Dosage: 20.0MG UNKNOWN
     Route: 048
     Dates: start: 2007, end: 2015
  22. AMLODIPINE [Concomitant]
     Active Substance: AMLODIPINE BESYLATE
     Indication: BLOOD PRESSURE MEASUREMENT
     Dates: start: 1992
  23. POTASSIUM [Concomitant]
     Active Substance: POTASSIUM
     Indication: NUTRITIONAL SUPPLEMENTATION
  24. GABAPENTIN. [Concomitant]
     Active Substance: GABAPENTIN
  25. PRAMIPEXOLE. [Concomitant]
     Active Substance: PRAMIPEXOLE
  26. QUETIAPINE. [Concomitant]
     Active Substance: QUETIAPINE
  27. IMIQUIMOD. [Concomitant]
     Active Substance: IMIQUIMOD
  28. SILDENAFIL. [Concomitant]
     Active Substance: SILDENAFIL
  29. ALKA?SELTZER [Concomitant]
     Active Substance: ANHYDROUS CITRIC ACID\ASPIRIN\SODIUM BICARBONATE
  30. LORAZEPAM. [Concomitant]
     Active Substance: LORAZEPAM
  31. HYDROXYZINE PAMOATE. [Concomitant]
     Active Substance: HYDROXYZINE PAMOATE
  32. CLONIDINE. [Concomitant]
     Active Substance: CLONIDINE
  33. METOCLOPRAMIDE. [Concomitant]
     Active Substance: METOCLOPRAMIDE
  34. ATENOLOL. [Concomitant]
     Active Substance: ATENOLOL
  35. FLUTICASONE. [Concomitant]
     Active Substance: FLUTICASONE
  36. PREVACID [Suspect]
     Active Substance: LANSOPRAZOLE
     Indication: DYSPEPSIA
     Dosage: 15.0MG UNKNOWN
     Route: 065
     Dates: start: 2007, end: 2015
  37. ADVIL [Concomitant]
     Active Substance: IBUPROFEN
     Indication: HEADACHE
  38. KLOR?CON [Concomitant]
     Active Substance: POTASSIUM CHLORIDE
  39. BYSTOLIC [Concomitant]
     Active Substance: NEBIVOLOL HYDROCHLORIDE
  40. METFORMIN [Concomitant]
     Active Substance: METFORMIN HYDROCHLORIDE
  41. BUSPIRONE HCL [Concomitant]
     Active Substance: BUSPIRONE HYDROCHLORIDE
  42. GLYBURIDE. [Concomitant]
     Active Substance: GLYBURIDE
  43. DIPHENHYDRAMINE. [Concomitant]
     Active Substance: DIPHENHYDRAMINE
  44. IPRATROPIUM [Concomitant]
     Active Substance: IPRATROPIUM
  45. PREVACID [Suspect]
     Active Substance: LANSOPRAZOLE
     Indication: DYSPEPSIA
     Dosage: GENERIC15.0MG UNKNOWN
     Route: 065
     Dates: start: 2007, end: 2015
  46. PANTOPRAZOLE [Suspect]
     Active Substance: PANTOPRAZOLE
     Indication: DYSPEPSIA
     Dosage: GENERIC40.0MG UNKNOWN
     Route: 065
     Dates: start: 201804
  47. VITAMIN B12 [Concomitant]
     Active Substance: CYANOCOBALAMIN
     Indication: VITAMIN SUPPLEMENTATION
  48. FLUOXETINE [Concomitant]
     Active Substance: FLUOXETINE HYDROCHLORIDE
  49. TRAZODONE [Concomitant]
     Active Substance: TRAZODONE HYDROCHLORIDE
  50. SPIRONOLACTONE. [Concomitant]
     Active Substance: SPIRONOLACTONE
  51. ZOLPIDEM [Concomitant]
     Active Substance: ZOLPIDEM TARTRATE
  52. METRONIDAZOLE. [Concomitant]
     Active Substance: METRONIDAZOLE
  53. MIRTAZAPINE. [Concomitant]
     Active Substance: MIRTAZAPINE
  54. ESCITALOPRAM [Concomitant]
     Active Substance: ESCITALOPRAM OXALATE
  55. MIRALAX [Concomitant]
     Active Substance: POLYETHYLENE GLYCOL 3350
  56. PRILOSEC [Suspect]
     Active Substance: OMEPRAZOLE MAGNESIUM
     Indication: DYSPEPSIA
     Dosage: GENERIC20.0MG UNKNOWN
     Route: 065
     Dates: start: 201211, end: 201311
  57. HYDROZINE [Concomitant]
     Indication: SLEEP DISORDER
     Dates: start: 200707
  58. CALCITRIOL. [Concomitant]
     Active Substance: CALCITRIOL
  59. ATORVASTATIN [Concomitant]
     Active Substance: ATORVASTATIN
  60. PROMETHAZINE [Concomitant]
     Active Substance: PROMETHAZINE HYDROCHLORIDE
  61. GAVILYTE [Concomitant]
  62. CIPROFLOXACIN. [Concomitant]
     Active Substance: CIPROFLOXACIN
  63. NEXIUM [Suspect]
     Active Substance: ESOMEPRAZOLE MAGNESIUM
     Indication: DYSPEPSIA
     Dosage: 20.0MG UNKNOWN
     Route: 065
     Dates: start: 2007, end: 2015
  64. NEXIUM 24HR [Suspect]
     Active Substance: ESOMEPRAZOLE MAGNESIUM
     Indication: DYSPEPSIA
     Dosage: 20.0MG UNKNOWN
     Route: 048
     Dates: start: 2007, end: 2015
  65. MINOXIDIL. [Concomitant]
     Active Substance: MINOXIDIL
     Indication: BLOOD PRESSURE MEASUREMENT
     Dates: start: 201706
  66. VELPHORA [Concomitant]
     Indication: BLOOD PHOSPHORUS DECREASED
  67. FAMOTIDINE. [Concomitant]
     Active Substance: FAMOTIDINE
  68. DIOVAN HCT [Concomitant]
     Active Substance: HYDROCHLOROTHIAZIDE\VALSARTAN
  69. LOVASTATIN. [Concomitant]
     Active Substance: LOVASTATIN
  70. NIFEDIPINE. [Concomitant]
     Active Substance: NIFEDIPINE
  71. MONTELUKAST [Concomitant]
     Active Substance: MONTELUKAST SODIUM
  72. RANITIDINE. [Concomitant]
     Active Substance: RANITIDINE
  73. ERYTHROMYCIN. [Concomitant]
     Active Substance: ERYTHROMYCIN
  74. CEFTAZIDIME. [Concomitant]
     Active Substance: CEFTAZIDIME

REACTIONS (6)
  - Renal failure [Unknown]
  - End stage renal disease [Not Recovered/Not Resolved]
  - Nephrogenic anaemia [Unknown]
  - Dyspepsia [Not Recovered/Not Resolved]
  - Chronic kidney disease [Not Recovered/Not Resolved]
  - Acute kidney injury [Unknown]

NARRATIVE: CASE EVENT DATE: 2011
